FAERS Safety Report 25771712 (Version 1)
Quarter: 2025Q3

REPORT INFORMATION
  Report Type: Spontaneous
  Country: US (occurrence: US)
  Receive Date: 20250908
  Receipt Date: 20250908
  Transmission Date: 20251021
  Serious: No
  Sender: DOMPE FARMACEUTICI
  Company Number: US-FARMAPROD-202505-1605

PATIENT
  Sex: Female

DRUGS (6)
  1. OXERVATE [Suspect]
     Active Substance: CENEGERMIN-BKBJ
     Indication: Neurotrophic keratopathy
     Route: 047
     Dates: start: 20250507
  2. OXERVATE [Suspect]
     Active Substance: CENEGERMIN-BKBJ
  3. IVIZIA [Concomitant]
     Active Substance: POVIDONE
  4. OCUVITE ADULT 50+ [ASCORBIC ACID;CUPRIC OXIDE;OMEGA-3 FATTY ACIDS;TOCO [Concomitant]
  5. MULTIVITAMIN 50 PLUS [PYRIDOXINE HYDROCHLORIDE;RETINOL;RIBOFLAVIN;VITA [Concomitant]
  6. ZYRTEC [Concomitant]
     Active Substance: CETIRIZINE HYDROCHLORIDE

REACTIONS (1)
  - Eye pain [Not Recovered/Not Resolved]
